FAERS Safety Report 9352475 (Version 2)
Quarter: 2013Q2

REPORT INFORMATION
  Report Type: Spontaneous
  Country: US (occurrence: US)
  Receive Date: 20130617
  Receipt Date: 20130617
  Transmission Date: 20140414
  Serious: Yes (Other)
  Sender: FDA-Public Use
  Company Number: US-BAXTER-2013BAX021747

PATIENT
  Sex: Female

DRUGS (3)
  1. 0.9% SODIUM CHLORIDE INJECTION [Suspect]
     Indication: HAEMODIALYSIS
     Route: 042
     Dates: start: 2000
  2. 0.9% SODIUM CHLORIDE INJECTION [Suspect]
     Indication: BLADDER DISORDER
  3. 0.9% SODIUM CHLORIDE IRRIGATION [Suspect]
     Indication: BLADDER DISORDER

REACTIONS (9)
  - Leukaemia [Unknown]
  - Pericardial effusion [Recovering/Resolving]
  - Pleural effusion [Recovering/Resolving]
  - Dysuria [Not Recovered/Not Resolved]
  - Rales [Recovered/Resolved]
  - Chest pain [Not Recovered/Not Resolved]
  - Weight decreased [Not Recovered/Not Resolved]
  - Fatigue [Not Recovered/Not Resolved]
  - Fluid retention [None]
